FAERS Safety Report 11473750 (Version 1)
Quarter: 2015Q3

REPORT INFORMATION
  Report Type: Spontaneous
  Country: SE (occurrence: SE)
  Receive Date: 20150908
  Receipt Date: 20150908
  Transmission Date: 20151125
  Serious: No
  Sender: FDA-Public Use
  Company Number: SE-JAZZ-2014-SE-013502

PATIENT
  Sex: Male

DRUGS (1)
  1. XYREM [Suspect]
     Active Substance: SODIUM OXYBATE
     Indication: PRODUCT USED FOR UNKNOWN INDICATION
     Dosage: UNKNOWN DOSE
     Route: 048
     Dates: start: 201304

REACTIONS (5)
  - Sedation [Unknown]
  - Somnolence [Unknown]
  - Overdose [Unknown]
  - Insomnia [Unknown]
  - Headache [Unknown]
